FAERS Safety Report 23139694 (Version 1)
Quarter: 2023Q4

REPORT INFORMATION
  Report Type: Spontaneous
  Country: CN (occurrence: CN)
  Receive Date: 20231102
  Receipt Date: 20231102
  Transmission Date: 20240110
  Serious: Yes (Hospitalization)
  Sender: FDA-Public Use
  Company Number: CN-BRISTOL-MYERS SQUIBB COMPANY-2023-156268

PATIENT
  Age: 66 Year
  Sex: Female
  Weight: 37.3 kg

DRUGS (1)
  1. REVLIMID [Suspect]
     Active Substance: LENALIDOMIDE
     Indication: Myelofibrosis
     Dosage: DRUG USE-TIMES: 1 DRUG USE-DAYS: 1
     Route: 048
     Dates: start: 20231017, end: 20231017

REACTIONS (3)
  - Vomiting [Recovering/Resolving]
  - Electrolyte imbalance [Recovering/Resolving]
  - Off label use [Unknown]

NARRATIVE: CASE EVENT DATE: 20231017
